FAERS Safety Report 4612763-0 (Version None)
Quarter: 2005Q1

REPORT INFORMATION
  Report Type: 
  Country: None (occurrence: None)
  Receive Date: 20050316
  Receipt Date: 20050301
  Transmission Date: 20050727
  Serious: Yes (Hospitalization)
  Sender: FDA-Public Use
  Company Number: 213083

PATIENT
  Age: 57 Year
  Sex: 0

DRUGS (2)
  1. AVASTIN [Suspect]
     Indication: RENAL CELL CARCINOMA STAGE UNSPECIFIED
     Dosage: 10 MG/KG, DAYS 1 + 15 , INTRAVENOUS
     Route: 042
     Dates: start: 20050201
  2. INTERFERON ALFA (INTERFERON ALFA) [Suspect]
     Indication: RENAL CELL CARCINOMA STAGE UNSPECIFIED
     Dosage: 0.9 MIU, 3/WEEK, SUBCUTANEOUS
     Route: 058
     Dates: start: 20050201

REACTIONS (6)
  - ANAEMIA [None]
  - ANOREXIA [None]
  - DEHYDRATION [None]
  - FATIGUE [None]
  - NAUSEA [None]
  - PROTEINURIA [None]
